FAERS Safety Report 24779234 (Version 1)
Quarter: 2024Q4

REPORT INFORMATION
  Report Type: Spontaneous
  Country: US (occurrence: None)
  Receive Date: 20241226
  Receipt Date: 20241226
  Transmission Date: 20250115
  Serious: Yes (Hospitalization)
  Sender: Public
  Company Number: None

PATIENT
  Age: 27 Year
  Sex: Female

DRUGS (1)
  1. GLATIRAMER [Suspect]
     Active Substance: GLATIRAMER
     Indication: Multiple sclerosis
     Dosage: FREQ: INJECT 40 MG UNDER THE SKIN (SUBCUTANEOUS INJECTION) EVERY MONDAY, WEDNESDAY, FRIDAY?
     Route: 058

REACTIONS (2)
  - Multiple sclerosis relapse [None]
  - Therapy interrupted [None]

NARRATIVE: CASE EVENT DATE: 20241101
